FAERS Safety Report 20203196 (Version 1)
Quarter: 2021Q4

REPORT INFORMATION
  Report Type: Report from Study
  Country: EG (occurrence: EG)
  Receive Date: 20211218
  Receipt Date: 20211218
  Transmission Date: 20220303
  Serious: Yes (Other)
  Sender: FDA-Public Use
  Company Number: EG-NOVARTISPH-NVSC2021EG285018

PATIENT
  Age: 55 Year
  Sex: Female

DRUGS (2)
  1. KISQALI [Suspect]
     Active Substance: RIBOCICLIB
     Indication: Breast cancer metastatic
     Dosage: 1 DOSAGE FORM, TID (3 WEEKS ON AND ONE OFF PER MONTH)
     Route: 065
     Dates: start: 20210620, end: 20211110
  2. AFINITOR [Concomitant]
     Active Substance: EVEROLIMUS
     Indication: Product used for unknown indication
     Dosage: 1 DOSAGE FORM, QD
     Route: 048
     Dates: start: 20211110

REACTIONS (2)
  - Lymphadenopathy [Not Recovered/Not Resolved]
  - Bone development abnormal [Not Recovered/Not Resolved]

NARRATIVE: CASE EVENT DATE: 20211101
